FAERS Safety Report 6653902-X (Version None)
Quarter: 2010Q1

REPORT INFORMATION
  Report Type: 
  Country: None (occurrence: None)
  Receive Date: 20100326
  Receipt Date: 20100323
  Transmission Date: 20100710
  Serious: Yes (Other)
  Sender: FDA-Public Use
  Company Number: US-ROXANE LABORATORIES, INC.-2010-RO-00319RO

PATIENT
  Age: 44 Year
  Sex: Female

DRUGS (22)
  1. LITHIUM CARBONATE [Suspect]
     Indication: MENTAL DISORDER
  2. LAMOTRIGINE [Suspect]
     Indication: MENTAL DISORDER
  3. TOPIRAMATE [Suspect]
     Indication: MENTAL DISORDER
  4. MIDAZOLAM HCL [Suspect]
     Route: 042
  5. HYDROMORPHONE HCL [Suspect]
     Indication: PAIN
     Route: 042
  6. HYDROMORPHONE HCL [Suspect]
     Route: 042
  7. ONDANSETRON [Suspect]
     Indication: PROPHYLAXIS OF NAUSEA AND VOMITING
     Route: 042
  8. ONDANSETRON [Suspect]
  9. CLONAZEPAM [Suspect]
     Indication: MENTAL DISORDER
  10. DULOXETINE HYDROCHLORIDE [Suspect]
     Indication: MENTAL DISORDER
  11. QUETIAPINE [Suspect]
     Indication: MENTAL DISORDER
  12. FENTANYL [Suspect]
     Indication: INDUCTION OF ANAESTHESIA
     Route: 042
  13. FENTANYL [Suspect]
     Route: 042
  14. PROPOFOL [Suspect]
     Indication: INDUCTION OF ANAESTHESIA
     Route: 042
  15. ROCURONIUM BROMIDE [Suspect]
     Indication: INDUCTION OF ANAESTHESIA
     Route: 042
  16. ROCURONIUM BROMIDE [Suspect]
     Indication: MAINTENANCE OF ANAESTHESIA
     Route: 042
  17. DESFLURANE [Suspect]
     Indication: MAINTENANCE OF ANAESTHESIA
     Route: 055
  18. LACTATED RINGER'S [Suspect]
     Route: 042
  19. HEXTEND [Suspect]
     Route: 042
  20. NEOSTIGMINE [Suspect]
     Indication: NEUROMUSCULAR BLOCKADE REVERSAL
     Route: 042
  21. GLYCOPYRROLATE [Suspect]
     Indication: NEUROMUSCULAR BLOCKADE REVERSAL
     Route: 042
  22. HYDROCODONE BITARTRATE AND ACETAMINOPHEN [Concomitant]
     Indication: PAIN
     Route: 048

REACTIONS (4)
  - APHASIA [None]
  - DISTURBANCE IN ATTENTION [None]
  - PAIN [None]
  - SEROTONIN SYNDROME [None]
